FAERS Safety Report 7514750-1 (Version None)
Quarter: 2011Q2

REPORT INFORMATION
  Report Type: 
  Country: None (occurrence: None)
  Receive Date: 20110601
  Receipt Date: 20110522
  Transmission Date: 20111010
  Serious: Yes (Hospitalization)
  Sender: FDA-Public Use
  Company Number: US-BAYER-200942170NA

PATIENT
  Age: 24 Year
  Sex: Female
  Weight: 77.098 kg

DRUGS (11)
  1. VICODIN [Concomitant]
     Indication: DIARRHOEA
  2. LEVAQUIN [Concomitant]
     Indication: DIARRHOEA
  3. NAPROXEN (ALEVE) [Concomitant]
     Dates: start: 20010101
  4. LEVAQUIN [Concomitant]
     Indication: ABDOMINAL PAIN LOWER
  5. YAZ [Suspect]
     Indication: ORAL CONTRACEPTION
     Dosage: UNK
     Route: 048
     Dates: start: 20071001, end: 20080201
  6. YASMIN [Suspect]
     Indication: ORAL CONTRACEPTION
     Dosage: UNK
     Route: 048
     Dates: start: 20031201, end: 20071001
  7. NSAID'S [Concomitant]
  8. DROSPIRENONE AND ETHINYL ESTRADIOL [Suspect]
     Indication: ORAL CONTRACEPTION
     Dosage: UNK
     Dates: start: 20080801, end: 20090401
  9. VICODIN [Concomitant]
     Indication: ABDOMINAL PAIN LOWER
  10. ASCORBIC ACID [Concomitant]
  11. YASMIN [Suspect]
     Dosage: UNK
     Dates: start: 20080301, end: 20080701

REACTIONS (3)
  - CHOLECYSTITIS CHRONIC [None]
  - BILIARY DYSKINESIA [None]
  - ABDOMINAL PAIN UPPER [None]
